FAERS Safety Report 12421358 (Version 2)
Quarter: 2016Q3

REPORT INFORMATION
  Report Type: Spontaneous
  Country: US (occurrence: US)
  Receive Date: 20160531
  Receipt Date: 20160801
  Transmission Date: 20161109
  Serious: Yes (Hospitalization)
  Sender: FDA-Public Use
  Company Number: US-BAYER-2016-103272

PATIENT
  Age: 30 Year
  Sex: Female
  Weight: 47.62 kg

DRUGS (19)
  1. AMOXICILLIN. [Concomitant]
     Active Substance: AMOXICILLIN
  2. CLINDAMYCIN [Concomitant]
     Active Substance: CLINDAMYCIN\CLINDAMYCIN PHOSPHATE
  3. ESCITALOPRAM [Concomitant]
     Active Substance: ESCITALOPRAM OXALATE
  4. DIAZEPAM. [Concomitant]
     Active Substance: DIAZEPAM
  5. OXYCODONE [Concomitant]
     Active Substance: OXYCODONE
  6. PROMETHAZINE [Concomitant]
     Active Substance: PROMETHAZINE\PROMETHAZINE HYDROCHLORIDE
  7. CITALOPRAM [Concomitant]
     Active Substance: CITALOPRAM HYDROBROMIDE
  8. AZITHROMYCIN ANHYDROUS. [Concomitant]
     Active Substance: AZITHROMYCIN ANHYDROUS
  9. FLUTICASONE [Concomitant]
     Active Substance: FLUTICASONE\FLUTICASONE PROPIONATE
  10. CLONAZEPAM. [Concomitant]
     Active Substance: CLONAZEPAM
  11. HYDROMORPHONI HYDROCHLORIDUM STREULI [Concomitant]
  12. RIZATRIPTAN. [Concomitant]
     Active Substance: RIZATRIPTAN
  13. MIRENA [Suspect]
     Active Substance: LEVONORGESTREL
     Indication: CONTRACEPTION
     Dosage: 20 MCG/24HR, CONT
     Route: 015
     Dates: start: 20090724, end: 20140228
  14. IBUPROFEN. [Concomitant]
     Active Substance: IBUPROFEN
  15. PAROXETINE. [Concomitant]
     Active Substance: PAROXETINE
  16. TIZANIDINE. [Concomitant]
     Active Substance: TIZANIDINE
  17. LORATADINE. [Concomitant]
     Active Substance: LORATADINE
  18. TAMIFLU [Concomitant]
     Active Substance: OSELTAMIVIR PHOSPHATE
  19. PROCHLORPERAZINE. [Concomitant]
     Active Substance: PROCHLORPERAZINE

REACTIONS (9)
  - Pelvic adhesions [None]
  - Uterine perforation [None]
  - Device issue [None]
  - Abdominal pain lower [None]
  - Abdominal pain [None]
  - Polymenorrhagia [Not Recovered/Not Resolved]
  - Pelvic pain [None]
  - Genital haemorrhage [Not Recovered/Not Resolved]
  - Device difficult to use [None]

NARRATIVE: CASE EVENT DATE: 20090812
